FAERS Safety Report 10869443 (Version 2)
Quarter: 2015Q3

REPORT INFORMATION
  Report Type: Report from Study
  Country: ES (occurrence: ES)
  Receive Date: 20150226
  Receipt Date: 20150904
  Transmission Date: 20151125
  Serious: Yes (Other)
  Sender: FDA-Public Use
  Company Number: ES-ROCHE-1542279

PATIENT
  Age: 37 Year
  Sex: Male

DRUGS (1)
  1. ZELBORAF [Suspect]
     Active Substance: VEMURAFENIB
     Indication: PRODUCT USED FOR UNKNOWN INDICATION
     Dosage: DOSE REDUCED
     Route: 065

REACTIONS (5)
  - Arthralgia [Recovering/Resolving]
  - Asthenia [Not Recovered/Not Resolved]
  - Ischaemia [Unknown]
  - Diarrhoea [Recovering/Resolving]
  - Pancreatic toxicity [Recovered/Resolved]
